FAERS Safety Report 5005236-7 (Version None)
Quarter: 2006Q2

REPORT INFORMATION
  Report Type: 
  Country: None (occurrence: None)
  Receive Date: 20060515
  Receipt Date: 20060509
  Transmission Date: 20061013
  Serious: Yes (Hospitalization, Other)
  Sender: FDA-Public Use
  Company Number: 1999-002958

PATIENT
  Age: 44 Year
  Sex: Female

DRUGS (8)
  1. VIRACEPT [Suspect]
     Indication: HIV TEST POSITIVE
     Dosage: BID, ORAL
     Route: 048
     Dates: start: 19980818
  2. INDINAVIR (INDIINAVIR) [Suspect]
     Indication: HIV TEST POSITIVE
     Dosage: 2 IN D, ORAL
     Route: 048
     Dates: start: 19980818
  3. LAMIVUDINE [Suspect]
     Indication: HIV TEST POSITIVE
     Dosage: 2 IN 1 D, ORAL
     Route: 048
     Dates: start: 19980923
  4. STAVUDINE [Suspect]
     Indication: HIV TEST POSITIVE
     Dosage: 2 IN 1 D, ORAL
     Route: 048
     Dates: start: 19980923
  5. COMBIVIR [Concomitant]
  6. PROPYLTHIOURACIL [Concomitant]
  7. KLONOPIN [Concomitant]
  8. ISONIAZID [Concomitant]

REACTIONS (8)
  - ANAEMIA [None]
  - ATRIOVENTRICULAR BLOCK COMPLETE [None]
  - CARDIAC ARREST [None]
  - ELECTROCARDIOGRAM QT PROLONGED [None]
  - NAUSEA [None]
  - SINUS BRADYCARDIA [None]
  - SYNCOPE [None]
  - VOMITING [None]
